FAERS Safety Report 5152428-2 (Version None)
Quarter: 2006Q4

REPORT INFORMATION
  Report Type: 
  Country: None (occurrence: None)
  Receive Date: 20061116
  Receipt Date: 20060502
  Transmission Date: 20070319
  Serious: Yes (Hospitalization)
  Sender: FDA-Public Use
  Company Number: US-ELI_LILLY_AND_COMPANY-US200608005813

PATIENT
  Age: 18 Year
  Sex: Male
  Weight: 67.12 kg

DRUGS (4)
  1. SERTRALINE [Concomitant]
     Dates: start: 20050201
  2. ZIPRASIDONE [Concomitant]
     Dates: start: 20050301
  3. ZYPREXA [Suspect]
     Dosage: 7.5 MG, UNK
     Dates: start: 20010501, end: 20030501
  4. ZYPREXA [Suspect]
     Dosage: 10 MG, UNK
     Dates: start: 20030501, end: 20050301

REACTIONS (7)
  - BLOOD CHOLESTEROL ABNORMAL [None]
  - CHEST PAIN [None]
  - HYPERGLYCAEMIA [None]
  - HYPERPHAGIA [None]
  - HYPERTENSION [None]
  - OBESITY [None]
  - SHOCK [None]
